FAERS Safety Report 17360194 (Version 1)
Quarter: 2020Q1

REPORT INFORMATION
  Report Type: Spontaneous
  Country: NL (occurrence: NL)
  Receive Date: 20200203
  Receipt Date: 20200203
  Transmission Date: 20200409
  Serious: Yes (Hospitalization)
  Sender: FDA-Public Use
  Company Number: NL-ACCORD-171427

PATIENT
  Sex: Male
  Weight: 64 kg

DRUGS (3)
  1. QUETIAPINE. [Suspect]
     Active Substance: QUETIAPINE
     Indication: PRODUCT USED FOR UNKNOWN INDICATION
     Dosage: 300 MG (MILLIGRAM), 1 TIME PER DAY, 1
     Dates: start: 20181205
  2. DEPAKINE [Suspect]
     Active Substance: VALPROATE SODIUM
     Indication: BIPOLAR DISORDER
     Dosage: 500 MG (MILLIGRAMS), 1 TIME PER DAY, 5
     Dates: start: 20121008
  3. PRIADEL [Suspect]
     Active Substance: LITHIUM
     Indication: BIPOLAR DISORDER
     Dosage: 400 MG (MILLIGRAM), 1 TIME PER DAY
     Dates: start: 201608

REACTIONS (2)
  - Dysphagia [Recovering/Resolving]
  - Weight decreased [Recovering/Resolving]
